FAERS Safety Report 12211602 (Version 1)
Quarter: 2016Q1

REPORT INFORMATION
  Report Type: Spontaneous
  Country: FR (occurrence: FR)
  Receive Date: 20160325
  Receipt Date: 20160325
  Transmission Date: 20160526
  Serious: Yes (Hospitalization)
  Sender: FDA-Public Use
  Company Number: FR-ASTRAZENECA-2016SE31018

PATIENT
  Age: 25110 Day
  Sex: Male

DRUGS (20)
  1. TACROLIMUS. [Suspect]
     Active Substance: TACROLIMUS
     Route: 048
     Dates: end: 201510
  2. FOLINIC ACID [Concomitant]
     Active Substance: LEUCOVORIN
     Dates: start: 20151030
  3. INEXIUM [Suspect]
     Active Substance: ESOMEPRAZOLE
     Route: 048
  4. MABTHERA [Concomitant]
     Active Substance: RITUXIMAB
     Dosage: 375 MG/M2, 700 MG AT DAY 1
  5. CETRIZINE [Concomitant]
     Active Substance: CETIRIZINE HYDROCHLORIDE
     Dosage: 10 MG
  6. VINCRISTINE [Concomitant]
     Active Substance: VINCRISTINE
  7. STILNOX [Concomitant]
     Active Substance: ZOLPIDEM TARTRATE
  8. PARACETAMOL [Concomitant]
     Active Substance: ACETAMINOPHEN
     Dosage: 1
  9. DIFFU K [Concomitant]
     Active Substance: POTASSIUM CHLORIDE
  10. METHYLPREDNISOLONE. [Concomitant]
     Active Substance: METHYLPREDNISOLONE
     Dosage: 60 MG FROM DAY 2 TO 5
  11. PROCARBAZINE [Concomitant]
     Active Substance: PROCARBAZINE
     Dosage: 200 MG FROM DAY 1 TO 7
  12. METHOTREXATE [Suspect]
     Active Substance: METHOTREXATE
     Indication: POST TRANSPLANT LYMPHOPROLIFERATIVE DISORDER
     Route: 065
     Dates: start: 20151029, end: 20151029
  13. LERCANIDIPINE [Concomitant]
     Active Substance: LERCANIDIPINE
  14. KEPPRA [Concomitant]
     Active Substance: LEVETIRACETAM
  15. NEBIVOLOL. [Concomitant]
     Active Substance: NEBIVOLOL
  16. CACIT D3 [Concomitant]
     Active Substance: CALCIUM\CHOLECALCIFEROL
  17. METHYLPREDNISOLONE. [Concomitant]
     Active Substance: METHYLPREDNISOLONE
  18. KARDEGIC [Suspect]
     Active Substance: ASPIRIN LYSINE
     Route: 048
  19. MYFORTIC [Suspect]
     Active Substance: MYCOPHENOLATE SODIUM
     Route: 048
     Dates: end: 201510
  20. ACTONEL [Concomitant]
     Active Substance: RISEDRONATE SODIUM

REACTIONS (3)
  - Blood creatine increased [Recovered/Resolved]
  - Acute kidney injury [Recovered/Resolved]
  - Drug level increased [Recovered/Resolved]

NARRATIVE: CASE EVENT DATE: 20151030
